FAERS Safety Report 18486279 (Version 1)
Quarter: 2020Q4

REPORT INFORMATION
  Report Type: Spontaneous
  Country: CN (occurrence: CN)
  Receive Date: 20201110
  Receipt Date: 20201110
  Transmission Date: 20210114
  Serious: Yes (Other)
  Sender: FDA-Public Use
  Company Number: CN-PFIZER INC-2020439047

PATIENT
  Age: 12 Year
  Sex: Female
  Weight: 42 kg

DRUGS (1)
  1. CEFOPERAZONE SODIUM [Suspect]
     Active Substance: CEFOPERAZONE SODIUM
     Indication: UPPER RESPIRATORY TRACT INFECTION
     Dosage: 1.600 G, 2X/DAY
     Route: 041
     Dates: start: 20201026, end: 20201029

REACTIONS (4)
  - Lichen planus [Unknown]
  - Rash [Recovered/Resolved]
  - Drug hypersensitivity [Unknown]
  - Pruritus [Unknown]

NARRATIVE: CASE EVENT DATE: 20201029
